FAERS Safety Report 9444490 (Version 1)
Quarter: 2013Q3

REPORT INFORMATION
  Report Type: Spontaneous
  Country: US (occurrence: None)
  Receive Date: 20130806
  Receipt Date: 20130806
  Transmission Date: 20140515
  Serious: Yes (Hospitalization)
  Sender: FDA-Public Use
  Company Number: None

PATIENT
  Age: 49 Year
  Sex: Male

DRUGS (1)
  1. VARENICICLINE [Suspect]
     Indication: SMOKING CESSATION THERAPY
     Dosage: 53MG ORAL?SINGLE OVERDOSE
     Route: 048

REACTIONS (1)
  - Suicidal ideation [None]
